FAERS Safety Report 23528395 (Version 2)
Quarter: 2024Q3

REPORT INFORMATION
  Report Type: Spontaneous
  Country: IN (occurrence: IN)
  Receive Date: 20240215
  Receipt Date: 20240710
  Transmission Date: 20241017
  Serious: Yes (Other)
  Sender: PFIZER
  Company Number: IN-PFIZER INC-2021082307

PATIENT
  Age: 42 Year
  Sex: Female

DRUGS (18)
  1. PALBOCICLIB [Suspect]
     Active Substance: PALBOCICLIB
     Indication: Breast cancer metastatic
     Dosage: 125 MG, CYCLIC: DAILY D1-D21 + 1 WK OFF (21X28)
     Route: 048
     Dates: start: 20201121
  2. LETROZOLE [Concomitant]
     Active Substance: LETROZOLE
     Dosage: 2.5 MG, 1X/DAY
  3. GOSERELIN [Concomitant]
     Active Substance: GOSERELIN
     Dosage: 3.6 MG, CYCLIC: EVERY (Q) 28 DAYS (Q MONTH)
  4. LEUPROLIDE ACETATE [Concomitant]
     Active Substance: ISOPROPYL ALCOHOL\LEUPROLIDE ACETATE
     Dosage: 3.7 MG, 28 DAYS
  5. LAMEZ [Concomitant]
     Dosage: 50 MG, DAILY
  6. LAMEZ [Concomitant]
     Dosage: 50 MG, 2X/DAY (50 BD)
  7. PROTHIADEN [Concomitant]
     Active Substance: DOTHIEPIN HYDROCHLORIDE
     Dosage: 75 MG, 2X/DAY (75 BD)
  8. VELOZ [Concomitant]
     Dosage: 40 MG, DAILY
  9. FEMARA [Concomitant]
     Active Substance: LETROZOLE
     Dosage: 2.5 OD
  10. ZOLEDRONIC ACID [Concomitant]
     Active Substance: ZOLEDRONIC ACID
     Dosage: 4 G, CYCLIC (Q 3MON)
  11. CCM [CALCIUM CITRATE MALATE;COLECALCIFEROL;FOLIC ACID] [Concomitant]
     Dosage: OD
  12. REXIPRA [Concomitant]
     Dosage: 15 OD
  13. LOPEZ [OLANZAPINE] [Concomitant]
     Dosage: 2 G, 1X/DAY (2G OD)
  14. ULTRACET [Concomitant]
     Active Substance: ACETAMINOPHEN\TRAMADOL HYDROCHLORIDE
     Dosage: SOS
  15. CLONAZEPAM [Concomitant]
     Active Substance: CLONAZEPAM
     Dosage: 0.5 SOS
  16. TELMA [TELMISARTAN] [Concomitant]
     Dosage: 20 OD
  17. BISOPROLOL FUMARATE [Concomitant]
     Active Substance: BISOPROLOL FUMARATE
     Dosage: 2.5 MG, 1X/DAY (OD)
  18. ANASVITAE [Concomitant]
     Dosage: 10 BD

REACTIONS (10)
  - Second primary malignancy [Unknown]
  - Renal cell carcinoma [Unknown]
  - Gastrointestinal disorder [Unknown]
  - Fatigue [Unknown]
  - Folliculitis [Unknown]
  - Tooth disorder [Unknown]
  - Haemoglobin decreased [Unknown]
  - White blood cell count decreased [Unknown]
  - Platelet count decreased [Unknown]
  - Dry skin [Unknown]

NARRATIVE: CASE EVENT DATE: 20230601
